FAERS Safety Report 23827493 (Version 1)
Quarter: 2024Q2

REPORT INFORMATION
  Report Type: Report from Study
  Country: US (occurrence: None)
  Receive Date: 20240507
  Receipt Date: 20240507
  Transmission Date: 20240716
  Serious: Yes (Hospitalization, Other)
  Sender: FDA-Public Use
  Company Number: 2024A103285

PATIENT
  Age: 23955 Day
  Sex: Female
  Weight: 64.4 kg

DRUGS (1)
  1. LYNPARZA [Suspect]
     Active Substance: OLAPARIB
     Indication: Ovarian cancer
     Route: 048
     Dates: start: 20230726

REACTIONS (3)
  - Dehydration [Unknown]
  - Concussion [Unknown]
  - Dizziness [Unknown]

NARRATIVE: CASE EVENT DATE: 20240417
